FAERS Safety Report 14248382 (Version 17)
Quarter: 2019Q3

REPORT INFORMATION
  Report Type: Report from Study
  Country: US (occurrence: US)
  Receive Date: 20171204
  Receipt Date: 20190717
  Transmission Date: 20191004
  Serious: Yes (Other)
  Sender: FDA-Public Use
  Company Number: US-TEVA-2017-US-827856

PATIENT
  Sex: Male

DRUGS (7)
  1. CLOZAPINE TEVA [Suspect]
     Active Substance: CLOZAPINE
     Route: 048
  2. CLOZAPINE TEVA [Suspect]
     Active Substance: CLOZAPINE
     Route: 048
  3. CLOZAPINE TEVA [Suspect]
     Active Substance: CLOZAPINE
     Route: 048
  4. CLOZAPINE TEVA [Suspect]
     Active Substance: CLOZAPINE
     Route: 048
  5. CLOZAPINE TEVA [Suspect]
     Active Substance: CLOZAPINE
     Route: 048
  6. CLOZAPINE TEVA [Suspect]
     Active Substance: CLOZAPINE
     Route: 048
  7. CLOZAPINE TEVA [Suspect]
     Active Substance: CLOZAPINE
     Route: 048

REACTIONS (1)
  - Granulocytopenia [Unknown]
